FAERS Safety Report 16446440 (Version 1)
Quarter: 2019Q2

REPORT INFORMATION
  Report Type: Report from Study
  Country: NO (occurrence: NO)
  Receive Date: 20190618
  Receipt Date: 20190618
  Transmission Date: 20190711
  Serious: Yes (Other)
  Sender: FDA-Public Use
  Company Number: NO-PFIZER INC-2019258084

PATIENT
  Sex: Male

DRUGS (7)
  1. BLEOMYCIN [Suspect]
     Active Substance: BLEOMYCIN SULFATE
     Indication: TESTICULAR GERM CELL TUMOUR
     Dosage: UNK, CYCLIC (CUMULATIVE DOSE: 540 MG)
  2. CYCLOPHOSPHAMIDE. [Suspect]
     Active Substance: CYCLOPHOSPHAMIDE
     Indication: TESTICULAR GERM CELL TUMOUR
     Dosage: 500 MG/M2, CYCLIC (DAY 2, CUMULATIVE DOSE 18050 MG, REPEATED AT 3-WEEK INTERVALS)
  3. VINBLASTIN [Suspect]
     Active Substance: VINBLASTINE
     Indication: TESTICULAR GERM CELL TUMOUR
     Dosage: UNK, CYCLIC (CUMULATIVE DOSE 76 MG)
  4. ACTINOMYCIN D [Suspect]
     Active Substance: DACTINOMYCIN
     Indication: TESTICULAR GERM CELL TUMOUR
     Dosage: 0.3 MG/M2, CYCLIC (MAX. DAILY DOSE 0.5 MG, DAYS 2-4, REPEATED AT 3-WEEK INTERVALS)
  5. ADRIAMYCIN [Suspect]
     Active Substance: DOXORUBICIN HYDROCHLORIDE
     Indication: TESTICULAR GERM CELL TUMOUR
     Dosage: 50 MG/M2, CYCLIC (DAY 2, CUMULATIVE DOSE 975 MG REPEATED AT 3-WEEK INTERVALS)
  6. VINCRISTINE SULFATE. [Suspect]
     Active Substance: VINCRISTINE SULFATE
     Indication: TESTICULAR GERM CELL TUMOUR
     Dosage: 1.50 MG/M2, CYCLIC (MAX. 2 MG) DAY 1 (AND DAY 8 AND 15 OF FIRST COURSE, REPEATED AT 3 WEEK INTERVAL)
  7. CISPLATIN. [Suspect]
     Active Substance: CISPLATIN
     Indication: TESTICULAR GERM CELL TUMOUR
     Dosage: UNK, CYCLIC (CUMULATIVE DOSE 1490 MG)

REACTIONS (2)
  - Second primary malignancy [Unknown]
  - Malignant melanoma [Unknown]
